FAERS Safety Report 5135631-7 (Version None)
Quarter: 2006Q4

REPORT INFORMATION
  Report Type: 
  Country: None (occurrence: None)
  Receive Date: 20061026
  Receipt Date: 20061017
  Transmission Date: 20070319
  Serious: Yes (Hospitalization)
  Sender: FDA-Public Use
  Company Number: 2006PK02131

PATIENT
  Age: 81 Year
  Sex: Male
  Weight: 80 kg

DRUGS (5)
  1. ATACAND [Suspect]
     Indication: LEFT VENTRICULAR FAILURE
     Route: 048
     Dates: start: 20060307, end: 20060707
  2. LISINOPRIL [Concomitant]
     Dosage: 10/12.5 MG
  3. QUERTO 25 [Concomitant]
  4. TOREM [Concomitant]
  5. HCT [Concomitant]

REACTIONS (3)
  - ASCITES [None]
  - PLEURAL EFFUSION [None]
  - RENAL FAILURE [None]
